FAERS Safety Report 5487194-4 (Version None)
Quarter: 2007Q4

REPORT INFORMATION
  Report Type: 
  Country: None (occurrence: None)
  Receive Date: 20071016
  Receipt Date: 20071004
  Transmission Date: 20080405
  Serious: Yes (Death, Hospitalization, Other)
  Sender: FDA-Public Use
  Company Number: US-ELI_LILLY_AND_COMPANY-US200710001375

PATIENT
  Sex: Male

DRUGS (5)
  1. CYMBALTA [Suspect]
     Indication: DIABETIC NEUROPATHY
     Dosage: 60 MG, UNK
     Dates: start: 20061201
  2. CYMBALTA [Suspect]
     Dosage: 60 MG, EACH MORNING
     Dates: start: 20070201
  3. CYMBALTA [Suspect]
     Dosage: 90 MG, DAILY (1/D)
     Dates: start: 20070301
  4. LYRICA [Concomitant]
  5. AVAPRO [Concomitant]

REACTIONS (6)
  - AGITATION [None]
  - DIABETES MELLITUS [None]
  - FLUID INTAKE REDUCED [None]
  - HYPERTENSION [None]
  - HYPOTENSION [None]
  - RESPIRATORY ARREST [None]
